FAERS Safety Report 26152654 (Version 1)
Quarter: 2025Q4

REPORT INFORMATION
  Report Type: Report from Study
  Country: US (occurrence: US)
  Receive Date: 20251214
  Receipt Date: 20251214
  Transmission Date: 20260118
  Serious: Yes (Other)
  Sender: ABBVIE
  Company Number: US-ABBVIE-6588638

PATIENT
  Age: 67 Year
  Sex: Female

DRUGS (1)
  1. SYNTHROID [Suspect]
     Active Substance: LEVOTHYROXINE SODIUM
     Indication: Product used for unknown indication
     Dosage: TAKE 1 TABLET MONDAY THROUGH SATURDAY AND TAKE 2 TABLETS ON SUNDAY
     Route: 048
     Dates: start: 20231114

REACTIONS (6)
  - Thyroidectomy [Unknown]
  - Hypothyroidism [Unknown]
  - Alopecia [Unknown]
  - Weight increased [Unknown]
  - Constipation [Unknown]
  - Asthenia [Unknown]

NARRATIVE: CASE EVENT DATE: 20250101
